FAERS Safety Report 5103408-4 (Version None)
Quarter: 2006Q3

REPORT INFORMATION
  Report Type: 
  Country: None (occurrence: None)
  Receive Date: 20060731
  Receipt Date: 20060410
  Transmission Date: 20061208
  Serious: Yes (Death)
  Sender: FDA-Public Use
  Company Number: US-JNJFOC-20060305033

PATIENT
  Age: 38 Year
  Sex: Male
  Weight: 75.2971 kg

DRUGS (4)
  1. RISPERDAL [Suspect]
     Indication: SCHIZOAFFECTIVE DISORDER
     Dosage: 3 MG, 2 IN 1 DAY, ORAL
     Route: 048
     Dates: start: 20050301, end: 20060301
  2. LORAZEPAM [Concomitant]
  3. CYMBALTA [Concomitant]
  4. COGENTIN [Concomitant]

REACTIONS (1)
  - COMPLETED SUICIDE [None]
